FAERS Safety Report 9693068 (Version 2)
Quarter: 2014Q2

REPORT INFORMATION
  Report Type: Spontaneous
  Country: US (occurrence: US)
  Receive Date: 20131118
  Receipt Date: 20140416
  Transmission Date: 20141212
  Serious: Yes (Other)
  Sender: FDA-Public Use
  Company Number: US-BAYER-2013-138793

PATIENT
  Age: 24 Year
  Sex: Female

DRUGS (4)
  1. BEYAZ [Suspect]
     Route: 048
  2. YAZ [Suspect]
     Route: 048
  3. OCELLA [Suspect]
     Route: 048
  4. LEVOTHYROXINE [Concomitant]
     Indication: HYPOTHYROIDISM

REACTIONS (1)
  - Pulmonary embolism [None]
